FAERS Safety Report 17032546 (Version 2)
Quarter: 2019Q4

REPORT INFORMATION
  Report Type: Spontaneous
  Country: GB (occurrence: GB)
  Receive Date: 20191114
  Receipt Date: 20191118
  Transmission Date: 20200122
  Serious: Yes (Death, Hospitalization)
  Sender: FDA-Public Use
  Company Number: PHHY2019GB093893

PATIENT
  Age: 83 Year
  Sex: Male

DRUGS (1)
  1. METHOTREXATE. [Suspect]
     Active Substance: METHOTREXATE
     Indication: PSORIASIS
     Dosage: 5 MG (AVERAGE WEEKLY DOSE OF 5MG)
     Route: 065

REACTIONS (4)
  - Dyspnoea [Unknown]
  - Pulmonary fibrosis [Fatal]
  - Pneumonia [Unknown]
  - Productive cough [Unknown]
